FAERS Safety Report 6504542-4 (Version None)
Quarter: 2009Q4

REPORT INFORMATION
  Report Type: 
  Country: None (occurrence: None)
  Receive Date: 20091215
  Receipt Date: 20091204
  Transmission Date: 20100525
  Serious: Yes (Hospitalization)
  Sender: FDA-Public Use
  Company Number: 2009AC000295

PATIENT
  Age: 56 Year
  Sex: Female

DRUGS (18)
  1. DIGOXIN [Suspect]
     Indication: ATRIAL FIBRILLATION
     Dosage: .125 MG;QD;PO
     Route: 048
     Dates: start: 20080406, end: 20080506
  2. LEXAPRO [Concomitant]
  3. ZOCOR [Concomitant]
  4. ACIDOPHILUS [Concomitant]
  5. CYMBALTA [Concomitant]
  6. WELLBUTRIN [Concomitant]
  7. ULTRAM [Concomitant]
  8. DIFLUCAN [Concomitant]
  9. COREG [Concomitant]
  10. ALTACE [Concomitant]
  11. AMBIEN [Concomitant]
  12. ADVIL [Concomitant]
  13. DETROL [Concomitant]
  14. EFFEXOR [Concomitant]
  15. ATIVAN [Concomitant]
  16. RAMIPRIL [Concomitant]
  17. LASIX [Concomitant]
  18. ALDACTONE [Concomitant]

REACTIONS (14)
  - ARTHRITIS [None]
  - CARDIAC FAILURE CONGESTIVE [None]
  - CARDIOMYOPATHY [None]
  - DEPRESSION [None]
  - DIZZINESS [None]
  - DYSPNOEA [None]
  - FALL [None]
  - FRACTURED COCCYX [None]
  - HYPERVENTILATION [None]
  - LOSS OF CONSCIOUSNESS [None]
  - MIDDLE INSOMNIA [None]
  - MUSCLE SPASMS [None]
  - MYOPATHY [None]
  - OEDEMA PERIPHERAL [None]
